FAERS Safety Report 8243686-6 (Version None)
Quarter: 2012Q1

REPORT INFORMATION
  Report Type: 
  Country: None (occurrence: None)
  Receive Date: 20120329
  Receipt Date: 20110426
  Transmission Date: 20120608
  Serious: No
  Sender: FDA-Public Use
  Company Number: US-MYLANLABS-2011S1007094

PATIENT
  Sex: Female

DRUGS (18)
  1. VITAMIN D [Concomitant]
  2. OTHER MINERAL SUPPLEMENTS [Concomitant]
  3. FAMOTIDINE [Concomitant]
  4. CELEBREX [Concomitant]
  5. CETIRIZINE [Concomitant]
  6. GUAIFENESIN [Concomitant]
  7. ASTELIN [Concomitant]
  8. ATENOLOL [Concomitant]
  9. FLUNISOLIDE [Concomitant]
  10. GABAPENTIN [Concomitant]
  11. MSM [Concomitant]
  12. AMITRIPTYLINE HCL [Concomitant]
  13. LIDODERM [Concomitant]
     Route: 062
  14. ALBUTEROL SULATE [Suspect]
     Indication: ASTHMA
     Route: 055
  15. ALBUTEROL SULATE [Suspect]
     Indication: BRONCHITIS
     Route: 055
  16. PROMETHAZINE /00033003/ [Concomitant]
     Route: 054
  17. BUDESONIDE [Concomitant]
  18. AMOXICILLIN [Concomitant]

REACTIONS (1)
  - RASH PAPULAR [None]
